FAERS Safety Report 11757190 (Version 1)
Quarter: 2015Q4

REPORT INFORMATION
  Report Type: Spontaneous
  Country: US (occurrence: None)
  Receive Date: 20151119
  Receipt Date: 20151119
  Transmission Date: 20160304
  Serious: Yes (Hospitalization)
  Sender: FDA-Public Use
  Company Number: None

PATIENT
  Age: 84 Year
  Sex: Male
  Weight: 72 kg

DRUGS (1)
  1. DIGOXIN 0.125 MG [Suspect]
     Active Substance: DIGOXIN
     Indication: ATRIAL FIBRILLATION
     Route: 048

REACTIONS (5)
  - Disorientation [None]
  - Headache [None]
  - Fall [None]
  - Cardioactive drug level increased [None]
  - Ataxia [None]

NARRATIVE: CASE EVENT DATE: 20151103
